FAERS Safety Report 11999271 (Version 1)
Quarter: 2016Q1

REPORT INFORMATION
  Report Type: Spontaneous
  Country: KR (occurrence: KR)
  Receive Date: 20160204
  Receipt Date: 20160204
  Transmission Date: 20160526
  Serious: Yes (Hospitalization)
  Sender: FDA-Public Use
  Company Number: KR-ACTELION-A-CH2015-127122

PATIENT
  Age: 64 Year
  Sex: Female
  Weight: 49 kg

DRUGS (10)
  1. DILATREND [Concomitant]
     Active Substance: CARVEDILOL
     Indication: ATRIAL FIBRILLATION
     Dosage: UNK
     Dates: start: 20131230
  2. LUKAIR [Concomitant]
     Active Substance: MONTELUKAST SODIUM
     Indication: ASTHMA
     Dosage: UNK
     Dates: start: 20150817
  3. SOLONDO [Concomitant]
     Active Substance: PREDNISOLONE
     Indication: ATRIAL SEPTAL DEFECT
     Dosage: UNK
     Dates: start: 20150909
  4. TRACLEER [Suspect]
     Active Substance: BOSENTAN
     Indication: PULMONARY ARTERIAL HYPERTENSION
     Dosage: 125 MG, BID
     Route: 048
     Dates: end: 20160114
  5. SILDENAFIL. [Concomitant]
     Active Substance: SILDENAFIL
     Indication: PULMONARY ARTERIAL HYPERTENSION
     Dosage: 20 MG, UNK
     Dates: start: 20160104
  6. SYMBICORT [Concomitant]
     Active Substance: BUDESONIDE\FORMOTEROL FUMARATE DIHYDRATE
     Indication: ASTHMA
     Dosage: UNK
     Route: 055
     Dates: start: 20150817, end: 20151117
  7. PRITOR [Concomitant]
     Active Substance: TELMISARTAN
     Indication: HYPERTENSION
     Dosage: UNK
     Dates: start: 20150808
  8. TRACLEER [Suspect]
     Active Substance: BOSENTAN
     Dosage: 62.5 MG, BID
     Route: 048
     Dates: start: 20150813
  9. VILANTEROL [Concomitant]
     Indication: ASTHMA
     Dosage: UNK
     Dates: start: 20051118
  10. FLUTICASONE [Concomitant]
     Active Substance: FLUTICASONE\FLUTICASONE PROPIONATE
     Indication: ASTHMA
     Dosage: 100 UNK, UNK
     Dates: start: 20151118

REACTIONS (8)
  - Atrial fibrillation [Recovering/Resolving]
  - Oedema [Recovered/Resolved]
  - Cough [Recovering/Resolving]
  - Supraventricular tachycardia [Unknown]
  - Ventricular extrasystoles [Unknown]
  - Pericardial effusion [Recovered/Resolved]
  - Dyspnoea [Recovering/Resolving]
  - Right ventricular dysfunction [Unknown]

NARRATIVE: CASE EVENT DATE: 20151029
